FAERS Safety Report 7298399-4 (Version None)
Quarter: 2011Q1

REPORT INFORMATION
  Report Type: 
  Country: None (occurrence: None)
  Receive Date: 20110217
  Receipt Date: 20100518
  Transmission Date: 20110831
  Serious: No
  Sender: FDA-Public Use
  Company Number: US-PFIZER INC-2010047151

PATIENT
  Sex: Female
  Weight: 51.247 kg

DRUGS (6)
  1. XALATAN [Suspect]
     Indication: INTRAOCULAR PRESSURE TEST
     Dosage: 2 GTT DAILY
     Route: 047
  2. OSCAL 500-D [Concomitant]
     Indication: OSTEOPOROSIS
     Dosage: UNK
  3. LATANOPROST [Suspect]
  4. ALPHAGAN [Concomitant]
     Dosage: 2 GTT, 2X/DAY
     Route: 047
  5. ACETYLSALICYLIC ACID [Concomitant]
     Indication: PROPHYLAXIS
     Dosage: 81 MG, 1X/DAY
  6. FOSAMAX [Concomitant]
     Indication: OSTEOPOROSIS
     Dosage: 70 MG, WEEKLY

REACTIONS (2)
  - EYE IRRITATION [None]
  - INCORRECT DOSE ADMINISTERED [None]
